FAERS Safety Report 25418335 (Version 1)
Quarter: 2025Q2

REPORT INFORMATION
  Report Type: Spontaneous
  Country: US (occurrence: None)
  Receive Date: 20250606
  Receipt Date: 20250606
  Transmission Date: 20250717
  Serious: Yes (Hospitalization)
  Sender: FDA-CTU
  Company Number: None

PATIENT
  Age: 58 Year
  Sex: Male
  Weight: 101 kg

DRUGS (2)
  1. OXALIPLATIN [Suspect]
     Active Substance: OXALIPLATIN
     Indication: Hepatic cancer metastatic
     Dates: start: 20250521, end: 20250521
  2. OXYCODONE HYDROCHLORIDE [Suspect]
     Active Substance: OXYCODONE HYDROCHLORIDE

REACTIONS (9)
  - Diplopia [None]
  - Feeling hot [None]
  - Infusion related reaction [None]
  - Dizziness [None]
  - Cold sweat [None]
  - Blood glucose increased [None]
  - Aphasia [None]
  - Abdominal pain [None]
  - Product name confusion [None]

NARRATIVE: CASE EVENT DATE: 20250521
